FAERS Safety Report 6975559-0 (Version None)
Quarter: 2010Q3

REPORT INFORMATION
  Report Type: 
  Country: None (occurrence: None)
  Receive Date: 20100910
  Receipt Date: 20100907
  Transmission Date: 20110219
  Serious: No
  Sender: FDA-Public Use
  Company Number: US-BIOGENIDEC-2010BI030870

PATIENT
  Sex: Female

DRUGS (2)
  1. AVONEX [Suspect]
     Indication: MULTIPLE SCLEROSIS
     Route: 030
     Dates: start: 20031001
  2. AVONEX [Suspect]
     Route: 030
     Dates: start: 20000801, end: 20020901

REACTIONS (3)
  - ARTHRALGIA [None]
  - ARTHRITIS [None]
  - PAIN [None]
